FAERS Safety Report 15452054 (Version 1)
Quarter: 2018Q4

REPORT INFORMATION
  Report Type: Other
  Country: US (occurrence: US)
  Receive Date: 20181001
  Receipt Date: 20181001
  Transmission Date: 20190204
  Serious: Yes (Hospitalization, Other)
  Sender: FDA-Public Use
  Company Number: US-NAVINTA LLC-000065

PATIENT
  Age: 50 Year
  Sex: Male

DRUGS (1)
  1. NICARDIPINE [Suspect]
     Active Substance: NICARDIPINE
     Indication: HYPERTENSIVE EMERGENCY
     Route: 041

REACTIONS (4)
  - Cerebral infarction [Unknown]
  - Hypotension [Unknown]
  - Coma [Not Recovered/Not Resolved]
  - Cerebral arteriosclerosis [Unknown]
